FAERS Safety Report 8056678-7 (Version None)
Quarter: 2012Q1

REPORT INFORMATION
  Report Type: 
  Country: None (occurrence: None)
  Receive Date: 20120119
  Receipt Date: 20110321
  Transmission Date: 20120608
  Serious: No
  Sender: FDA-Public Use
  Company Number: US-SANOFI-AVENTIS-2011SA022433

PATIENT
  Age: 73 Year
  Sex: Male

DRUGS (7)
  1. LASIX [Suspect]
     Indication: BLOOD PRESSURE
     Route: 048
     Dates: end: 20110303
  2. LISINOPRIL [Suspect]
     Route: 065
     Dates: start: 20110301
  3. VERAPAMIL [Suspect]
     Indication: BLOOD PRESSURE
     Route: 065
     Dates: end: 20110303
  4. LISINOPRIL [Suspect]
     Indication: BLOOD PRESSURE
     Route: 065
     Dates: end: 20110303
  5. WARFARIN SODIUM [Concomitant]
     Indication: THROMBOSIS
     Dosage: REPORTED DOSAGE: 5 MG QD ON MONDAY., TUESDAY, 7.5 MG
     Route: 048
     Dates: start: 20110105
  6. CILOSTAZOL [Concomitant]
     Indication: PERIPHERAL ARTERIAL OCCLUSIVE DISEASE
  7. METOPROLOL TARTRATE [Concomitant]

REACTIONS (3)
  - DYSPNOEA [None]
  - DIZZINESS POSTURAL [None]
  - HYPOTENSION [None]
